FAERS Safety Report 5201558-5 (Version None)
Quarter: 2007Q1

REPORT INFORMATION
  Report Type: 
  Country: None (occurrence: None)
  Receive Date: 20070108
  Receipt Date: 20061229
  Transmission Date: 20070707
  Serious: Yes (Life-Threatening)
  Sender: FDA-Public Use
  Company Number: IN-BAXTER-2006BH015331

PATIENT
  Age: 26 Year
  Sex: Female

DRUGS (3)
  1. OXYTOCIN [Suspect]
     Indication: LABOUR INDUCTION
     Route: 065
  2. OXYTOCIN [Suspect]
     Indication: HAEMORRHAGE PROPHYLAXIS
     Route: 065
  3. GLUCOSE (DEXTROSE) SOLUTION FOR INTRAVENOUS INFUSION 5% [Concomitant]
     Indication: DRUG USE FOR UNKNOWN INDICATION
     Route: 065

REACTIONS (5)
  - ACUTE PULMONARY OEDEMA [None]
  - CAESAREAN SECTION [None]
  - CERVIX DYSTOCIA [None]
  - FACE OEDEMA [None]
  - HYPONATRAEMIA [None]
